FAERS Safety Report 11106530 (Version 1)
Quarter: 2015Q2

REPORT INFORMATION
  Report Type: Spontaneous
  Country: None (occurrence: None)
  Receive Date: 20150511
  Receipt Date: 20150511
  Transmission Date: 20150821
  Serious: Yes (Disabling)
  Sender: FDA-Public Use
  Company Number: None

PATIENT
  Age: 33 Year
  Sex: Female
  Weight: 68.04 kg

DRUGS (2)
  1. PHILIPS PROBIOTIC [Concomitant]
  2. CLINDAMYCIN 300MG [Suspect]
     Active Substance: CLINDAMYCIN PHOSPHATE
     Indication: STAPHYLOCOCCAL INFECTION
     Dates: start: 20141014, end: 20141031

REACTIONS (4)
  - Abdominal pain [None]
  - Vaginal discharge [None]
  - Diarrhoea haemorrhagic [None]
  - Diarrhoea [None]

NARRATIVE: CASE EVENT DATE: 20141014
